FAERS Safety Report 8295386-4 (Version None)
Quarter: 2012Q2

REPORT INFORMATION
  Report Type: 
  Country: None (occurrence: None)
  Receive Date: 20120418
  Receipt Date: 20111202
  Transmission Date: 20120825
  Serious: Yes (Hospitalization)
  Sender: FDA-Public Use
  Company Number: US-UCBSA-046996

PATIENT
  Age: 40 Year
  Sex: Male

DRUGS (1)
  1. KEPPRA XR [Suspect]
     Dosage: 500 MG

REACTIONS (1)
  - DEPENDENCE [None]
